FAERS Safety Report 15434735 (Version 1)
Quarter: 2018Q3

REPORT INFORMATION
  Report Type: Report from Study
  Country: IL (occurrence: IL)
  Receive Date: 20180927
  Receipt Date: 20180927
  Transmission Date: 20181010
  Serious: Yes (Other)
  Sender: FDA-Public Use
  Company Number: IL-IPSEN BIOPHARMACEUTICALS, INC.-2018-14694

PATIENT
  Age: 60 Year
  Sex: Male
  Weight: 114 kg

DRUGS (16)
  1. AMARYL [Concomitant]
     Active Substance: GLIMEPIRIDE
     Route: 048
  2. ASACOL [Concomitant]
     Active Substance: MESALAMINE
     Route: 048
  3. LOSEC [Concomitant]
     Active Substance: OMEPRAZOLE
     Route: 048
  4. SUTENT [Suspect]
     Active Substance: SUNITINIB MALATE
     Indication: METASTASES TO LIVER
  5. COLECALCIFEROL [Concomitant]
     Active Substance: CHOLECALCIFEROL
  6. GLUCOMIN [Concomitant]
     Active Substance: METFORMIN HYDROCHLORIDE
     Route: 048
  7. IMURAN [Suspect]
     Active Substance: AZATHIOPRINE
     Indication: INFLAMMATORY BOWEL DISEASE
  8. SOMATULINE AUTOGEL 120MG [Suspect]
     Active Substance: LANREOTIDE ACETATE
     Dosage: 120 MG
     Route: 058
     Dates: start: 2017
  9. CIPRAMIL [Concomitant]
     Active Substance: CITALOPRAM HYDROBROMIDE
     Route: 048
  10. SERETIDE [Concomitant]
     Active Substance: FLUTICASONE PROPIONATE\SALMETEROL XINAFOATE
     Route: 055
  11. RECLAST [Concomitant]
     Active Substance: ZOLEDRONIC ACID
     Route: 042
  12. MICROPIRIN [Concomitant]
     Active Substance: ASPIRIN
     Route: 048
  13. RECLAST [Concomitant]
     Active Substance: ZOLEDRONIC ACID
     Route: 042
  14. SUTENT [Suspect]
     Active Substance: SUNITINIB MALATE
     Indication: METASTASES TO BONE
  15. URSOLIT [Concomitant]
     Route: 048
  16. SOMATULINE AUTOGEL 120MG [Suspect]
     Active Substance: LANREOTIDE ACETATE
     Indication: NEUROENDOCRINE TUMOUR
     Dosage: 120 MG
     Route: 058
     Dates: start: 20110829, end: 2017

REACTIONS (22)
  - Cholelithiasis [Unknown]
  - Metastases to the mediastinum [Unknown]
  - Metastases to liver [Unknown]
  - Colitis [Unknown]
  - Mitral valve incompetence [Unknown]
  - Cerebral haemangioma [Unknown]
  - Diabetes mellitus inadequate control [Unknown]
  - Stent placement [Unknown]
  - Inappropriate schedule of drug administration [Unknown]
  - Cardiac ventricular thrombosis [Unknown]
  - Cerebral disorder [Unknown]
  - Leukopenia [Unknown]
  - Malignant melanoma [Unknown]
  - Gynaecomastia [Unknown]
  - Weight increased [Unknown]
  - Lung disorder [Unknown]
  - Tricuspid valve incompetence [Unknown]
  - Atelectasis [Unknown]
  - Transurethral prostatectomy [Unknown]
  - Meningioma [Unknown]
  - General physical health deterioration [Unknown]
  - Metastases to bone [Unknown]

NARRATIVE: CASE EVENT DATE: 20111228
